FAERS Safety Report 10619428 (Version 2)
Quarter: 2014Q4

REPORT INFORMATION
  Report Type: Spontaneous
  Country: IT (occurrence: IT)
  Receive Date: 20141202
  Receipt Date: 20141202
  Transmission Date: 20150529
  Serious: Yes (Hospitalization)
  Sender: FDA-Public Use
  Company Number: PHHY2014IT137682

PATIENT
  Sex: Male

DRUGS (6)
  1. VENLAFAXINE [Concomitant]
     Active Substance: VENLAFAXINE HYDROCHLORIDE
  2. DELORAZEPAM [Concomitant]
     Active Substance: DELORAZEPAM
  3. MIRTAZAPINE. [Suspect]
     Active Substance: MIRTAZAPINE
     Dosage: 600 MG, ONCE/SINGLE
     Route: 048
     Dates: start: 20140930, end: 20140930
  4. LISINOPRIL. [Concomitant]
     Active Substance: LISINOPRIL
  5. TRIAZOLAM. [Concomitant]
     Active Substance: TRIAZOLAM
  6. VALDORM [Concomitant]
     Active Substance: VALERIAN
     Dosage: 30 MG, UNK

REACTIONS (2)
  - Drug abuse [Recovering/Resolving]
  - Sopor [Recovering/Resolving]

NARRATIVE: CASE EVENT DATE: 20140930
